FAERS Safety Report 6414466-9 (Version None)
Quarter: 2009Q4

REPORT INFORMATION
  Report Type: 
  Country: None (occurrence: None)
  Receive Date: 20091021
  Receipt Date: 20081224
  Transmission Date: 20100525
  Serious: Yes (Other)
  Sender: FDA-Public Use
  Company Number: 8040641

PATIENT
  Age: 35 Year
  Sex: Female

DRUGS (1)
  1. KEPPRA [Suspect]

REACTIONS (1)
  - CARDIAC FAILURE [None]
